FAERS Safety Report 6465096-4 (Version None)
Quarter: 2009Q4

REPORT INFORMATION
  Report Type: 
  Country: None (occurrence: None)
  Receive Date: 20091201
  Receipt Date: 20090330
  Transmission Date: 20100525
  Serious: No
  Sender: FDA-Public Use
  Company Number: US-AMGEN-COG340721

PATIENT
  Sex: Female

DRUGS (1)
  1. ENBREL [Suspect]
     Indication: RHEUMATOID ARTHRITIS
     Route: 058
     Dates: start: 20090220

REACTIONS (3)
  - ARTHRITIS [None]
  - INCREASED TENDENCY TO BRUISE [None]
  - SYSTEMIC LUPUS ERYTHEMATOSUS RASH [None]
